FAERS Safety Report 21298312 (Version 2)
Quarter: 2022Q4

REPORT INFORMATION
  Report Type: Report from Study
  Country: CA (occurrence: CA)
  Receive Date: 20220906
  Receipt Date: 20221025
  Transmission Date: 20230112
  Serious: Yes (Other)
  Sender: FDA-Public Use
  Company Number: CA-TAKEDA-2022TUS061475

PATIENT
  Age: 69 Year
  Sex: Male

DRUGS (1)
  1. PONATINIB [Suspect]
     Active Substance: PONATINIB
     Indication: Blast cell crisis
     Dosage: 45 MILLIGRAM, QD
     Route: 048
     Dates: start: 20220809

REACTIONS (5)
  - Lung disorder [Not Recovered/Not Resolved]
  - Sepsis [Unknown]
  - Febrile neutropenia [Recovered/Resolved]
  - Pyrexia [Not Recovered/Not Resolved]
  - Cough [Unknown]

NARRATIVE: CASE EVENT DATE: 20220826
